FAERS Safety Report 6971575-3 (Version None)
Quarter: 2010Q3

REPORT INFORMATION
  Report Type: 
  Country: None (occurrence: None)
  Receive Date: 20100908
  Receipt Date: 20100827
  Transmission Date: 20110219
  Serious: Yes (Hospitalization)
  Sender: FDA-Public Use
  Company Number: US-WYE-H17384110

PATIENT
  Sex: Female
  Weight: 108.05 kg

DRUGS (9)
  1. PRISTIQ [Suspect]
     Indication: PAIN
     Route: 048
     Dates: start: 20090101
  2. PRISTIQ [Suspect]
     Indication: FIBROMYALGIA
  3. ALDACTONE [Concomitant]
     Indication: ACNE
  4. LYRICA [Suspect]
     Indication: PAIN
     Route: 048
     Dates: start: 20090101, end: 20100819
  5. LYRICA [Suspect]
     Indication: FIBROMYALGIA
     Route: 048
     Dates: start: 20100820
  6. FENTANYL CITRATE [Concomitant]
  7. OXYCODONE HCL AND ACETAMINOPHEN [Concomitant]
     Indication: NECK PAIN
     Dosage: UNKNOWN
  8. WELLBUTRIN [Concomitant]
  9. XANAX [Concomitant]

REACTIONS (9)
  - APHASIA [None]
  - CONDITION AGGRAVATED [None]
  - CONFUSIONAL STATE [None]
  - HEAD INJURY [None]
  - MALAISE [None]
  - MIGRAINE [None]
  - PAIN [None]
  - ROAD TRAFFIC ACCIDENT [None]
  - VOMITING [None]
